FAERS Safety Report 8232843-0 (Version None)
Quarter: 2012Q1

REPORT INFORMATION
  Report Type: 
  Country: None (occurrence: None)
  Receive Date: 20120323
  Receipt Date: 20120319
  Transmission Date: 20120608
  Serious: Yes (Death)
  Sender: FDA-Public Use
  Company Number: AU-ASTRAZENECA-2012SE18585

PATIENT
  Age: 79 Year
  Sex: Female

DRUGS (2)
  1. CLOPIDOGREL [Concomitant]
  2. BRILINTA [Suspect]
     Route: 048
     Dates: start: 20120227, end: 20120301

REACTIONS (1)
  - DEATH [None]
